FAERS Safety Report 8785209 (Version 1)
Quarter: 2012Q4

REPORT INFORMATION
  Report Type: Spontaneous
  Country: CO (occurrence: None)
  Receive Date: 20120831
  Receipt Date: 20120831
  Transmission Date: 20130627
  Serious: Yes (Death)
  Sender: FDA-Public Use
  Company Number: DSU-2012-06862

PATIENT
  Age: 79 Year
  Sex: Male

DRUGS (2)
  1. OLMETEC HCT [Suspect]
     Indication: HYPERTENSION
     Route: 048
     Dates: start: 2010
  2. CORTEL (INGREDIENTS UNKNOWN) [Concomitant]

REACTIONS (1)
  - Pneumonia [None]
